FAERS Safety Report 4310522-X (Version None)
Quarter: 2004Q1

REPORT INFORMATION
  Report Type: 
  Country: None (occurrence: None)
  Receive Date: 20040303
  Receipt Date: 20030804
  Transmission Date: 20041129
  Serious: Yes (Disabling, Other)
  Sender: FDA-Public Use
  Company Number: US-GLAXOSMITHKLINE-A0419758A

PATIENT
  Age: 27 Year
  Sex: Male

DRUGS (1)
  1. ADVAIR DISKUS 100/50 [Suspect]
     Indication: ILL-DEFINED DISORDER
     Route: 055
     Dates: start: 20021022

REACTIONS (4)
  - FALL [None]
  - INJURY [None]
  - LOSS OF CONSCIOUSNESS [None]
  - SKIN LACERATION [None]
